FAERS Safety Report 6161128-1 (Version None)
Quarter: 2009Q2

REPORT INFORMATION
  Report Type: 
  Country: None (occurrence: None)
  Receive Date: 20090421
  Receipt Date: 20071206
  Transmission Date: 20091009
  Serious: No
  Sender: FDA-Public Use
  Company Number: US-ASTRAZENECA-2006UW22249

PATIENT
  Age: 16673 Day
  Sex: Female
  Weight: 98.4 kg

DRUGS (24)
  1. SEROQUEL [Suspect]
     Indication: SCHIZOAFFECTIVE DISORDER
     Route: 048
     Dates: start: 20010101
  2. SEROQUEL [Suspect]
     Dosage: 25 MG-200 MG
     Route: 048
     Dates: start: 20001026
  3. DIPHENHYDRAMINE HCL [Concomitant]
  4. FLUOXETINE [Concomitant]
  5. HALOPERIDOL [Concomitant]
  6. LORAZEPAM [Concomitant]
  7. VENLAFAXINE HYDROCHLORIDE [Concomitant]
  8. METFORMIN HCL [Concomitant]
  9. ATENOLOL [Concomitant]
  10. KLOR-CON [Concomitant]
  11. GEODON [Concomitant]
  12. NOVOLOG [Concomitant]
  13. ZOLOFT [Concomitant]
  14. GUAIFENESIN [Concomitant]
  15. ALBUTEROL [Concomitant]
  16. PREDNISONE [Concomitant]
  17. SYNTHROID [Concomitant]
  18. ABILIFY [Concomitant]
  19. BENZTROPINE MESYLATE [Concomitant]
  20. HYOSCYAMINE [Concomitant]
  21. LIPITOR [Concomitant]
  22. CARDIZEM [Concomitant]
  23. HYDROCODONE BITARTRATE [Concomitant]
  24. VERAPAMIL [Concomitant]

REACTIONS (24)
  - ABDOMINAL PAIN UPPER [None]
  - ACUTE SINUSITIS [None]
  - ANAL PAP SMEAR [None]
  - BLEPHARITIS [None]
  - BRONCHITIS [None]
  - DIABETES MELLITUS [None]
  - FATIGUE [None]
  - GASTROENTERITIS [None]
  - HORDEOLUM [None]
  - HYPERLIPIDAEMIA [None]
  - HYPERTHYROIDISM [None]
  - HYPERTRIGLYCERIDAEMIA [None]
  - INTERVERTEBRAL DISC DISORDER [None]
  - LYMPHOCYTE COUNT INCREASED [None]
  - MENSTRUATION IRREGULAR [None]
  - NEUROTRANSMITTER LEVEL ALTERED [None]
  - NEUTROPHIL COUNT [None]
  - NEUTROPHIL COUNT DECREASED [None]
  - OEDEMA PERIPHERAL [None]
  - PELVIC PAIN [None]
  - PHARYNGITIS [None]
  - RHINITIS ALLERGIC [None]
  - UPPER RESPIRATORY TRACT INFECTION [None]
  - URINARY TRACT INFECTION [None]
